FAERS Safety Report 20430747 (Version 1)
Quarter: 2022Q1

REPORT INFORMATION
  Report Type: Report from Study
  Country: FR (occurrence: FR)
  Receive Date: 20220204
  Receipt Date: 20220204
  Transmission Date: 20220424
  Serious: Yes (Hospitalization)
  Sender: FDA-Public Use
  Company Number: FR-SERVIER-S21002619

PATIENT

DRUGS (7)
  1. PEGASPARGASE [Suspect]
     Active Substance: PEGASPARGASE
     Indication: Acute lymphocytic leukaemia
     Dosage: 4200 IU, QD, D4
     Route: 042
     Dates: start: 20210129, end: 20210129
  2. VINCRISTINE SULFATE [Suspect]
     Active Substance: VINCRISTINE SULFATE
     Indication: Acute lymphocytic leukaemia
     Dosage: 2 MG, D1, D8, D15, D22
     Route: 042
     Dates: start: 20210126, end: 20210216
  3. DAUNORUBICIN HYDROCHLORIDE [Suspect]
     Active Substance: DAUNORUBICIN HYDROCHLORIDE
     Indication: Acute lymphocytic leukaemia
     Dosage: 50 MG, D1, D8, D15, D22
     Route: 042
     Dates: start: 20210126, end: 20210216
  4. DEXAMETHASONE [Suspect]
     Active Substance: DEXAMETHASONE
     Indication: Acute lymphocytic leukaemia
     Dosage: 16.5 MG, D1 TO D7, D15 TO D21
     Route: 048
     Dates: start: 20210126, end: 20210215
  5. METHYLPREDNISOLONE [Suspect]
     Active Substance: METHYLPREDNISOLONE
     Indication: Acute lymphocytic leukaemia
     Dosage: 15.2 MG, D4
     Route: 037
     Dates: start: 20210129
  6. METHOTREXATE [Suspect]
     Active Substance: METHOTREXATE
     Indication: Acute lymphocytic leukaemia
     Dosage: 15 MG, D4
     Route: 037
     Dates: start: 20210129
  7. CYTARABINE [Suspect]
     Active Substance: CYTARABINE
     Indication: Acute lymphocytic leukaemia
     Dosage: 30 MG, D4
     Route: 037
     Dates: start: 20210129

REACTIONS (3)
  - Lung abscess [Not Recovered/Not Resolved]
  - Bone abscess [Not Recovered/Not Resolved]
  - Anal ulcer [Not Recovered/Not Resolved]

NARRATIVE: CASE EVENT DATE: 20210224
